FAERS Safety Report 21632276 (Version 1)
Quarter: 2022Q4

REPORT INFORMATION
  Report Type: Spontaneous
  Country: CA (occurrence: CA)
  Receive Date: 20221123
  Receipt Date: 20221123
  Transmission Date: 20230112
  Serious: Yes (Other)
  Sender: FDA-Public Use
  Company Number: CA-SUN PHARMACEUTICAL INDUSTRIES LTD-2022R1-364721

PATIENT
  Age: 40 Year
  Sex: Female

DRUGS (2)
  1. MINOCYCLINE [Suspect]
     Active Substance: MINOCYCLINE HYDROCHLORIDE
     Indication: Hypereosinophilic syndrome
     Dosage: 100 MILLIGRAM, BID
     Route: 065
     Dates: start: 2006
  2. TETRACYCLINE [Suspect]
     Active Substance: TETRACYCLINE
     Indication: Hypereosinophilic syndrome
     Dosage: 1500 MILLIGRAM, DAILY/DIVIDED INTO 3 DOSES
     Route: 065
     Dates: start: 2008

REACTIONS (1)
  - Therapy non-responder [Unknown]
